FAERS Safety Report 8401689-2 (Version None)
Quarter: 2012Q2

REPORT INFORMATION
  Report Type: 
  Country: None (occurrence: None)
  Receive Date: 20120529
  Receipt Date: 20100509
  Transmission Date: 20120825
  Serious: Yes (Death)
  Sender: FDA-Public Use
  Company Number: 008686

PATIENT
  Age: 90 Year
  Sex: Female

DRUGS (13)
  1. RELIFEN (NABUMETONE) [Concomitant]
  2. PLETAL [Suspect]
     Indication: PERIPHERAL ARTERIAL OCCLUSIVE DISEASE
     Dosage: 50 MG, BID, ORAL
     Route: 048
     Dates: start: 20090119, end: 20090817
  3. HERBESSOR R (DILTIAZEM HYDROCHLORIDE) [Concomitant]
  4. DEKASOFT (UBIDECARENONE) [Concomitant]
  5. TRANDOLAPRIL [Concomitant]
  6. ADALAT-CR (NEFEDIPINE) [Concomitant]
  7. MUCOSTA (REBAMIPIDE) [Concomitant]
  8. MEILAX (ETHYL LOFLAZEPATE) [Concomitant]
  9. PRORENAL (LIMAPROST ALFADEX) [Concomitant]
  10. ALINAMIN0F (FURSULITAMINE) [Concomitant]
  11. OPALMON (LIMAPROST ALFADEX) [Concomitant]
  12. ISOSORBIDE MONONITRATE [Concomitant]
  13. SERMION (NICERGOLINE) [Concomitant]

REACTIONS (11)
  - MULTI-ORGAN FAILURE [None]
  - CEREBRAL INFARCTION [None]
  - ARTERIOSCLEROSIS CORONARY ARTERY [None]
  - GASTROENTERITIS [None]
  - NOSOCOMIAL INFECTION [None]
  - MYOCARDIAL ISCHAEMIA [None]
  - PERIPHERAL ARTERIAL OCCLUSIVE DISEASE [None]
  - EMBOLIC STROKE [None]
  - CONDITION AGGRAVATED [None]
  - QUALITY OF LIFE DECREASED [None]
  - CARDIAC FAILURE CONGESTIVE [None]
